FAERS Safety Report 7037920-8 (Version None)
Quarter: 2010Q4

REPORT INFORMATION
  Report Type: 
  Country: None (occurrence: None)
  Receive Date: 20101011
  Receipt Date: 20101011
  Transmission Date: 20110411
  Serious: Yes (Death, Disabling, Other)
  Sender: FDA-Public Use
  Company Number: US-ABBOTT-10P-163-0672537-00

PATIENT
  Sex: Male

DRUGS (1)
  1. ZEMPLAR [Suspect]
     Indication: NEPHROPATHY
     Dosage: UNSURE OF STRENGTH OR FREQUENCY
     Route: 048

REACTIONS (8)
  - BACTERIAL INFECTION [None]
  - BLOOD IRON DECREASED [None]
  - CARDIAC FAILURE CONGESTIVE [None]
  - CORONARY ARTERY DISEASE [None]
  - DYSPHAGIA [None]
  - LOSS OF CONSCIOUSNESS [None]
  - PYREXIA [None]
  - TREMOR [None]
